FAERS Safety Report 9106019 (Version 3)
Quarter: 2013Q1

REPORT INFORMATION
  Report Type: Spontaneous
  Country: IS (occurrence: IS)
  Receive Date: 20130220
  Receipt Date: 20130325
  Transmission Date: 20140127
  Serious: Yes (Other)
  Sender: FDA-Public Use
  Company Number: IS-ELI_LILLY_AND_COMPANY-IS201302003709

PATIENT
  Sex: Male

DRUGS (2)
  1. HUMALOG LISPRO [Suspect]
     Indication: DIABETES MELLITUS
     Dosage: 60 IU, QD
     Route: 058
     Dates: start: 2003
  2. HUMALOG LISPRO [Suspect]
     Dosage: UNK
     Route: 058

REACTIONS (1)
  - Blood glucose increased [Recovered/Resolved]
